FAERS Safety Report 21886133 (Version 1)
Quarter: 2023Q1

REPORT INFORMATION
  Report Type: Spontaneous
  Country: US (occurrence: None)
  Receive Date: 20230118
  Receipt Date: 20230118
  Transmission Date: 20230418
  Serious: Yes (Life-Threatening, Hospitalization)
  Sender: FDA-Public Use
  Company Number: None

PATIENT
  Sex: Male

DRUGS (3)
  1. VEMURAFENIB [Suspect]
     Active Substance: VEMURAFENIB
     Dosage: FREQUENCY : TWICE A DAY;?
     Route: 048
     Dates: start: 20220701, end: 20220713
  2. ZELBORAF [Concomitant]
     Active Substance: VEMURAFENIB
     Dates: start: 20220701, end: 20220713
  3. COBIMETINIB [Suspect]
     Active Substance: COBIMETINIB
     Dates: start: 20220701, end: 20220713

REACTIONS (10)
  - Rash [None]
  - Rash pruritic [None]
  - Oropharyngeal discomfort [None]
  - Gastrointestinal disorder [None]
  - Acute kidney injury [None]
  - Hyponatraemia [None]
  - Stevens-Johnson syndrome [None]
  - Agitation [None]
  - Encephalopathy [None]
  - Delirium [None]
